FAERS Safety Report 13734268 (Version 6)
Quarter: 2018Q1

REPORT INFORMATION
  Report Type: Spontaneous
  Country: JP (occurrence: JP)
  Receive Date: 20170708
  Receipt Date: 20180321
  Transmission Date: 20180508
  Serious: Yes (Death, Other)
  Sender: FDA-Public Use
  Company Number: JP-009507513-1706JPN001994J

PATIENT
  Age: 66 Year
  Sex: Male
  Weight: 67 kg

DRUGS (9)
  1. OMEPRAZOLE. [Concomitant]
     Active Substance: OMEPRAZOLE
     Indication: PROPHYLAXIS
     Dosage: 20 MG, BID
     Route: 051
  2. ROPION [Concomitant]
     Active Substance: FLURBIPROFEN AXETIL
     Dosage: 50 MG, QD
     Route: 051
  3. MORPHINE HYDROCHLORIDE HYDRATE [Concomitant]
     Active Substance: MORPHINE HYDROCHLORIDE
     Indication: SQUAMOUS CELL CARCINOMA OF LUNG
     Dosage: 10 MG, QD
     Route: 051
  4. KEYTRUDA [Suspect]
     Active Substance: PEMBROLIZUMAB
     Indication: SQUAMOUS CELL CARCINOMA OF LUNG
     Dosage: 200 MG, Q3W
     Route: 041
     Dates: start: 20170509, end: 20170509
  5. AKINETON [Concomitant]
     Active Substance: BIPERIDEN HYDROCHLORIDE
     Indication: PROPHYLAXIS
     Dosage: 5 MG, QD
     Route: 051
  6. ADONA [Concomitant]
     Active Substance: CARBAZOCHROME SODIUM SULFONATE
     Indication: SQUAMOUS CELL CARCINOMA OF LUNG
     Dosage: 100 MG, QD
     Route: 051
  7. MIDAZOLAM [Concomitant]
     Active Substance: MIDAZOLAM HYDROCHLORIDE
     Dosage: 10 MG, QD
     Route: 051
  8. SULBACILLIN [Concomitant]
     Active Substance: AMPICILLIN SODIUM\SULBACTAM SODIUM
     Dosage: 3 G, BID
     Route: 051
  9. SERENACE [Concomitant]
     Active Substance: HALOPERIDOL
     Dosage: 5 MG, QD
     Route: 051

REACTIONS (1)
  - Malignant neoplasm progression [Fatal]

NARRATIVE: CASE EVENT DATE: 20170516
